FAERS Safety Report 5715697-3 (Version None)
Quarter: 2008Q2

REPORT INFORMATION
  Report Type: 
  Country: None (occurrence: None)
  Receive Date: 20080423
  Receipt Date: 20080423
  Transmission Date: 20081010
  Serious: Yes (Death)
  Sender: FDA-Public Use
  Company Number: None

PATIENT
  Sex: Male
  Weight: 77.3 kg

DRUGS (6)
  1. CISPLATIN [Suspect]
     Dosage: 376 MG
     Dates: end: 20070605
  2. ERBITUX [Suspect]
     Dosage: 4015 MG
     Dates: end: 20070703
  3. KEFLEX [Concomitant]
  4. LIPITOR [Concomitant]
  5. LORTAB ELIXER [Concomitant]
  6. OXYCODONE HCL [Concomitant]

REACTIONS (9)
  - ACUTE RESPIRATORY DISTRESS SYNDROME [None]
  - DEEP VEIN THROMBOSIS [None]
  - DIALYSIS [None]
  - GLOMERULONEPHRITIS ACUTE [None]
  - MENTAL STATUS CHANGES [None]
  - METABOLIC DISORDER [None]
  - NEPHROPATHY [None]
  - OEDEMA PERIPHERAL [None]
  - RENAL FAILURE [None]
